FAERS Safety Report 18625364 (Version 1)
Quarter: 2020Q4

REPORT INFORMATION
  Report Type: Spontaneous
  Country: US (occurrence: US)
  Receive Date: 20201216
  Receipt Date: 20201216
  Transmission Date: 20210114
  Serious: No
  Sender: FDA-Public Use
  Company Number: US-CATALYST PHARMACEUTICALS, INC-2020CAT00499

PATIENT
  Sex: Male

DRUGS (1)
  1. FIRDAPSE [Suspect]
     Active Substance: AMIFAMPRIDINE PHOSPHATE
     Dosage: 0.25 ^PILL^

REACTIONS (5)
  - Fatigue [Unknown]
  - Limb discomfort [Unknown]
  - Unevaluable event [Unknown]
  - Asthenia [Unknown]
  - Condition aggravated [Unknown]
